FAERS Safety Report 25466150 (Version 1)
Quarter: 2025Q2

REPORT INFORMATION
  Report Type: Spontaneous
  Country: CN (occurrence: CN)
  Receive Date: 20250623
  Receipt Date: 20250623
  Transmission Date: 20250717
  Serious: Yes (Life-Threatening, Hospitalization, Other)
  Sender: BIO-THERA SOLUTIONS, LTD.
  Company Number: CN-Bio-Thera Solutions, Ltd.-2179169

PATIENT
  Age: 43 Year
  Sex: Male
  Weight: 50.5 kg

DRUGS (3)
  1. AVZIVI [Suspect]
     Active Substance: BEVACIZUMAB-TNJN
     Indication: Colon cancer
     Dates: start: 20250429, end: 20250429
  2. CAPECITABINE [Suspect]
     Active Substance: CAPECITABINE
     Dates: start: 20250429, end: 20250520
  3. SODIUM CHLORIDE [Suspect]
     Active Substance: SODIUM CHLORIDE
     Dates: start: 20250429, end: 20250429

REACTIONS (2)
  - Myelosuppression [Recovering/Resolving]
  - Hepatic function abnormal [Recovering/Resolving]

NARRATIVE: CASE EVENT DATE: 20250522
